FAERS Safety Report 17366069 (Version 1)
Quarter: 2020Q1

REPORT INFORMATION
  Report Type: Other
  Country: US (occurrence: US)
  Receive Date: 20200204
  Receipt Date: 20200204
  Transmission Date: 20200409
  Serious: Yes (Life-Threatening, Hospitalization, Other)
  Sender: FDA-Public Use
  Company Number: US-ATLAS PHARMACEUTICALS, LLC-2079783

PATIENT
  Age: 67 Year
  Sex: Male

DRUGS (1)
  1. METFORMIN [Suspect]
     Active Substance: METFORMIN HYDROCHLORIDE
     Indication: TYPE 2 DIABETES MELLITUS
     Route: 065

REACTIONS (9)
  - Somnolence [Recovered/Resolved]
  - Mental impairment [Recovered/Resolved]
  - Acute kidney injury [Recovering/Resolving]
  - Mucosal dryness [Unknown]
  - Blood pressure decreased [Unknown]
  - Toxicity to various agents [Unknown]
  - Gastroenteritis [Unknown]
  - Lactic acidosis [Recovered/Resolved]
  - Hyperkalaemia [Recovered/Resolved]
